FAERS Safety Report 22701382 (Version 5)
Quarter: 2023Q4

REPORT INFORMATION
  Report Type: Report from Study
  Country: US (occurrence: US)
  Receive Date: 20230713
  Receipt Date: 20231220
  Transmission Date: 20240110
  Serious: Yes (Other)
  Sender: FDA-Public Use
  Company Number: US-APELLIS PHARMACEUTICALS-APL-2023-002629

PATIENT
  Age: 81 Year
  Sex: Female

DRUGS (2)
  1. PEGCETACOPLAN [Suspect]
     Active Substance: PEGCETACOPLAN
     Indication: Age-related macular degeneration
     Dosage: UNK, OS
     Dates: start: 20230608
  2. INDAPAMIDE [Concomitant]
     Active Substance: INDAPAMIDE
     Indication: Arthritis
     Dosage: 2.5 MILLIGRAM, QD
     Route: 065

REACTIONS (6)
  - Retinal vascular disorder [Unknown]
  - Optic neuritis [Recovered/Resolved]
  - Visual field defect [Recovered/Resolved]
  - Visual impairment [Recovering/Resolving]
  - Intraocular pressure increased [Not Recovered/Not Resolved]
  - Eye pain [Recovered/Resolved]

NARRATIVE: CASE EVENT DATE: 20230101
